FAERS Safety Report 4446055-X (Version None)
Quarter: 2004Q3

REPORT INFORMATION
  Report Type: 
  Country: None (occurrence: None)
  Receive Date: 20040910
  Receipt Date: 20040625
  Transmission Date: 20050211
  Serious: Yes (Other)
  Sender: FDA-Public Use
  Company Number: HU-ROCHE-372327

PATIENT
  Age: 52 Year
  Sex: Female

DRUGS (1)
  1. CAPECITABINE [Suspect]
     Indication: BREAST CANCER
     Route: 048
     Dates: start: 20040610, end: 20040620

REACTIONS (6)
  - ASPHYXIA [None]
  - CONJUNCTIVITIS [None]
  - HYPERSENSITIVITY [None]
  - PALMAR-PLANTAR ERYTHRODYSAESTHESIA SYNDROME [None]
  - PERIORBITAL OEDEMA [None]
  - PRURITUS [None]
